FAERS Safety Report 18893266 (Version 16)
Quarter: 2021Q4

REPORT INFORMATION
  Report Type: Report from Study
  Country: IL (occurrence: IL)
  Receive Date: 20210215
  Receipt Date: 20211012
  Transmission Date: 20220303
  Serious: Yes (Death, Hospitalization)
  Sender: FDA-Public Use
  Company Number: IL-ROCHE-2762226

PATIENT
  Age: 77 Year
  Sex: Female
  Weight: 73.7 kg

DRUGS (31)
  1. ATEZOLIZUMAB [Suspect]
     Active Substance: ATEZOLIZUMAB
     Indication: Hepatocellular carcinoma
     Dosage: START DATE OF MOST RECENT DOSE OF STUDY DRUG PRIOR TO AE: 15/DEC/2020?DOSE LAST STUDY DRUG ADMIN PRI
     Route: 041
     Dates: start: 20201125
  2. TIRAGOLUMAB [Suspect]
     Active Substance: TIRAGOLUMAB
     Indication: Hepatocellular carcinoma
     Dosage: DOSE LAST STUDY DRUG ADMIN PRIOR AE: 600 MG?START DATE OF MOST RECENT DOSE OF STUDY DRUG PRIOR TO AE
     Route: 042
     Dates: start: 20201125
  3. BEVACIZUMAB [Suspect]
     Active Substance: BEVACIZUMAB
     Indication: Hepatocellular carcinoma
     Dosage: START DATE OF MOST RECENT DOSE (1150 MG) OF STUDY DRUG PRIOR TO AE: 15/DEC/2020
     Route: 042
     Dates: start: 20201125
  4. PROPRANOLOL HYDROCHLORIDE [Concomitant]
     Active Substance: PROPRANOLOL HYDROCHLORIDE
     Indication: Hypertension
     Route: 048
     Dates: start: 201505
  5. ACAMOL (ISRAEL) [Concomitant]
     Indication: Pain
     Route: 048
  6. NEXIUM [Concomitant]
     Active Substance: ESOMEPRAZOLE MAGNESIUM
     Indication: Prophylaxis
     Route: 048
     Dates: start: 202010
  7. ALDACTONE [Concomitant]
     Active Substance: SPIRONOLACTONE
     Indication: Hypertension
     Route: 048
     Dates: start: 20201001
  8. COSMETICS [Concomitant]
     Active Substance: COSMETICS
     Indication: Lipoma
     Dosage: 1 OTHER
     Route: 061
  9. ACYCLOVIR [Concomitant]
     Active Substance: ACYCLOVIR
     Indication: Encephalopathy
     Route: 042
     Dates: start: 20210110, end: 20210111
  10. AMPICILLIN [Concomitant]
     Active Substance: AMPICILLIN
     Indication: Encephalopathy
     Route: 042
     Dates: start: 20210110, end: 20210110
  11. AMPICILLIN [Concomitant]
     Active Substance: AMPICILLIN
     Route: 042
     Dates: start: 20210111, end: 20210111
  12. AMLODIPINE [Concomitant]
     Active Substance: AMLODIPINE BESYLATE
     Indication: Hypertension
     Route: 048
     Dates: start: 20210111, end: 20210117
  13. AMLODIPINE [Concomitant]
     Active Substance: AMLODIPINE BESYLATE
     Route: 048
     Dates: start: 20210201, end: 20210201
  14. DEXAMETAZONA [Concomitant]
     Indication: Encephalopathy
     Route: 042
     Dates: start: 20210110, end: 20210111
  15. KEFTRIAXON [Concomitant]
     Indication: Encephalopathy
     Route: 042
     Dates: start: 20210110, end: 20210110
  16. KEFTRIAXON [Concomitant]
     Indication: Infection
     Route: 042
     Dates: start: 20210125, end: 20210125
  17. KONAKION [Concomitant]
     Active Substance: PHYTONADIONE
     Indication: Encephalopathy
     Route: 048
     Dates: start: 20210110, end: 20210110
  18. FUSID (ISRAEL) [Concomitant]
     Indication: Hypertension
     Route: 048
     Dates: start: 20201221
  19. FUSID (ISRAEL) [Concomitant]
     Route: 048
     Dates: start: 20210201, end: 20210203
  20. CEFTRIAXONE-VIT [Concomitant]
     Indication: Infection
     Route: 042
     Dates: start: 20210124, end: 20210124
  21. CEFTRIAXONE-VIT [Concomitant]
     Route: 042
     Dates: start: 20210110, end: 20210111
  22. HALOPERIDOL [Concomitant]
     Active Substance: HALOPERIDOL
     Indication: Confusional state
     Route: 030
     Dates: start: 20210124, end: 20210124
  23. MIDOLAM [Concomitant]
     Indication: Sedation
     Route: 042
     Dates: start: 20210123, end: 20210123
  24. SODIUM CHLORIDE [Concomitant]
     Active Substance: SODIUM CHLORIDE
     Route: 042
     Dates: start: 20210123, end: 20210124
  25. AMIKACIN [Concomitant]
     Active Substance: AMIKACIN
     Indication: Infection
     Dates: start: 20210201, end: 20210201
  26. LOSARTAN POTASSIUM [Concomitant]
     Active Substance: LOSARTAN POTASSIUM
     Indication: Hypertension
     Route: 048
     Dates: start: 20210201, end: 20210203
  27. LOSARTAN POTASSIUM [Concomitant]
     Active Substance: LOSARTAN POTASSIUM
     Route: 048
     Dates: start: 20201221
  28. LOSARTAN POTASSIUM [Concomitant]
     Active Substance: LOSARTAN POTASSIUM
     Route: 048
     Dates: start: 20210113, end: 20210116
  29. MONUROL [Concomitant]
     Active Substance: FOSFOMYCIN TROMETHAMINE
     Indication: Infection
     Route: 048
     Dates: start: 20210202, end: 20210202
  30. CALCIUM\VITAMIN D [Concomitant]
     Active Substance: CALCIUM\VITAMIN D
     Route: 048
     Dates: start: 201208
  31. DEXACORT FORTE [Concomitant]
     Indication: Encephalopathy
     Route: 042
     Dates: start: 20210110, end: 20210110

REACTIONS (4)
  - Delirium [Recovered/Resolved with Sequelae]
  - Hepatic encephalopathy [Recovered/Resolved with Sequelae]
  - Atrial fibrillation [Not Recovered/Not Resolved]
  - Hepatic enzyme increased [Not Recovered/Not Resolved]

NARRATIVE: CASE EVENT DATE: 20210105
